FAERS Safety Report 10252564 (Version 1)
Quarter: 2014Q2

REPORT INFORMATION
  Report Type: Spontaneous
  Country: US (occurrence: None)
  Receive Date: 20140619
  Receipt Date: 20140619
  Transmission Date: 20141212
  Serious: Yes (Hospitalization, Other)
  Sender: FDA-Public Use
  Company Number: 2009S1006414

PATIENT
  Age: 52 Year
  Sex: Female
  Weight: 71.67 kg

DRUGS (3)
  1. FLEET PHOSPHO-SODA ORAL SALINE LAXATIVE, GINGER-LEMON FLAVOR (ORAL SOLUTION) [Suspect]
     Indication: SIGMOIDOSCOPY
     Route: 048
  2. PREVACID (LANSOPRAZOLE) [Concomitant]
  3. BENICAR (OLMESARTAN MEDOXOMIL) [Concomitant]

REACTIONS (13)
  - Renal failure acute [None]
  - Dehydration [None]
  - Anaemia [None]
  - Hypokalaemia [None]
  - Weight decreased [None]
  - Blood pressure increased [None]
  - Vitamin D deficiency [None]
  - Acute phosphate nephropathy [None]
  - Nephropathy toxic [None]
  - Metabolic acidosis [None]
  - Hyperparathyroidism [None]
  - Hyponatraemia [None]
  - Decreased appetite [None]
